FAERS Safety Report 5089490-1 (Version None)
Quarter: 2006Q3

REPORT INFORMATION
  Report Type: 
  Country: None (occurrence: None)
  Receive Date: 20060727
  Receipt Date: 20060619
  Transmission Date: 20061208
  Serious: Yes (Other)
  Sender: FDA-Public Use
  Company Number: 2006078647

PATIENT
  Age: 60 Year
  Sex: Male
  Weight: 116.5744 kg

DRUGS (8)
  1. LYRICA [Suspect]
     Indication: PAIN IN EXTREMITY
     Dosage: 100 MG (50 MG, 2 IN 1 D), UNKNOWN
     Route: 065
     Dates: start: 20060401, end: 20060101
  2. MORPHINE SULFATE [Concomitant]
  3. NORTRIPTYLINE HCL [Concomitant]
  4. RIFAMPICIN [Concomitant]
  5. BACTRIM DS [Concomitant]
  6. WELCHOL [Concomitant]
  7. NOVOLOG [Concomitant]
  8. DALMANE [Concomitant]

REACTIONS (3)
  - DRUG ADMINISTRATION ERROR [None]
  - ORAL DISCOMFORT [None]
  - SENSATION OF HEAVINESS [None]
